FAERS Safety Report 4709508-2 (Version None)
Quarter: 2005Q3

REPORT INFORMATION
  Report Type: 
  Country: None (occurrence: None)
  Receive Date: 20050706
  Receipt Date: 20050706
  Transmission Date: 20060218
  Serious: Yes (Life-Threatening, Hospitalization)
  Sender: FDA-Public Use
  Company Number: None

PATIENT
  Age: 44 Year
  Sex: Female
  Weight: 74.8435 kg

DRUGS (1)
  1. CELEBREX [Suspect]
     Indication: MUSCLE STRAIN
     Dosage: DON'T RECALL    DAILY    ORAL
     Route: 048
     Dates: start: 20031009, end: 20031013

REACTIONS (1)
  - INTRACRANIAL ANEURYSM [None]
